FAERS Safety Report 19536058 (Version 1)
Quarter: 2021Q3

REPORT INFORMATION
  Report Type: Spontaneous
  Country: US (occurrence: US)
  Receive Date: 20210713
  Receipt Date: 20210713
  Transmission Date: 20211014
  Serious: No
  Sender: FDA-Public Use
  Company Number: None

PATIENT
  Age: 53 Year
  Sex: Male
  Weight: 87.3 kg

DRUGS (1)
  1. MIRTAZAPINE TABLETS, USP 15 MG [Suspect]
     Active Substance: MIRTAZAPINE
     Dosage: ?          QUANTITY:30 TABLET(S);?
     Route: 048
     Dates: start: 20210708, end: 20210710

REACTIONS (3)
  - Drug ineffective [None]
  - Chills [None]
  - Headache [None]

NARRATIVE: CASE EVENT DATE: 20210708
